FAERS Safety Report 9717220 (Version 2)
Quarter: 2013Q4

REPORT INFORMATION
  Report Type: Spontaneous
  Country: US (occurrence: US)
  Receive Date: 20131127
  Receipt Date: 20131127
  Transmission Date: 20140711
  Serious: Yes (Other)
  Sender: FDA-Public Use
  Company Number: US-PFIZER INC-2013336048

PATIENT
  Age: 26 Year
  Sex: Female
  Weight: 40.82 kg

DRUGS (4)
  1. LYRICA [Suspect]
     Indication: FIBROMYALGIA
     Dosage: 200 MG, 2X/DAY
     Route: 048
     Dates: end: 201309
  2. LYRICA [Suspect]
     Indication: MIGRAINE
     Dosage: 200 MG, 2X/DAY
     Route: 048
     Dates: start: 2013, end: 2013
  3. GEODON [Concomitant]
     Dosage: 80 MG, 2X/DAY
  4. SEROQUEL [Concomitant]
     Dosage: UNK

REACTIONS (7)
  - Off label use [Unknown]
  - Weight decreased [Unknown]
  - Drug withdrawal syndrome [Unknown]
  - Mental disorder [Unknown]
  - Drug ineffective [Unknown]
  - Tremor [Unknown]
  - Muscle twitching [Unknown]
